FAERS Safety Report 7718449-8 (Version None)
Quarter: 2011Q3

REPORT INFORMATION
  Report Type: 
  Country: None (occurrence: None)
  Receive Date: 20110830
  Receipt Date: 20110825
  Transmission Date: 20111222
  Serious: No
  Sender: FDA-Public Use
  Company Number: US-PFIZER INC-2011198709

PATIENT
  Sex: Female
  Weight: 63.492 kg

DRUGS (4)
  1. NIFEDIPINE [Suspect]
     Indication: HYPERTENSION
     Dosage: 30 MG, 1X/DAY
     Route: 048
     Dates: start: 20110818
  2. PROCARDIA XL [Suspect]
     Indication: HYPERTENSION
     Dosage: 30 MG, 1X/DAY
     Route: 048
     Dates: start: 20100101, end: 20110817
  3. PROCARDIA XL [Suspect]
     Indication: RAYNAUD'S PHENOMENON
     Dosage: UNK, 1X/DAY
     Route: 048
     Dates: start: 20091101, end: 20100501
  4. NIFEDIPINE [Suspect]
     Indication: RAYNAUD'S PHENOMENON
     Dosage: UNK
     Route: 048
     Dates: start: 20100501, end: 20100101

REACTIONS (4)
  - DIZZINESS [None]
  - FEELING JITTERY [None]
  - FEELING ABNORMAL [None]
  - HEADACHE [None]
